FAERS Safety Report 9462922 (Version 1)
Quarter: 2013Q3

REPORT INFORMATION
  Report Type: Spontaneous
  Country: JP (occurrence: None)
  Receive Date: 20130814
  Receipt Date: 20130814
  Transmission Date: 20140515
  Serious: Yes (Hospitalization)
  Sender: FDA-Public Use
  Company Number: TCI2013A04795

PATIENT
  Age: 65 Year
  Sex: Male

DRUGS (5)
  1. LIOVEL COMBINATION TABLETS (ALOGLIPTIN BENZOATE, PIOGLITAZONE HYDROCHLORIDE) [Suspect]
     Indication: DIABETES MELLITUS
     Dosage: 1 TAB. (1 TAB., 1 IN 1 D)
     Route: 048
  2. CRESTOR (ROSUVASTATIN CALCIUM) [Concomitant]
  3. MEDET (METFORMIN HYDROCHLORIDE) [Concomitant]
  4. RETICOLAN (MECOBALAMIN) [Concomitant]
  5. KINEX (SERRAPEPTASE) [Concomitant]

REACTIONS (1)
  - Lung disorder [None]
